FAERS Safety Report 18404406 (Version 1)
Quarter: 2020Q4

REPORT INFORMATION
  Report Type: Spontaneous
  Country: GB (occurrence: GB)
  Receive Date: 20201020
  Receipt Date: 20201020
  Transmission Date: 20210114
  Serious: Yes (Other)
  Sender: FDA-Public Use
  Company Number: GB-SUN PHARMACEUTICAL INDUSTRIES LTD-2020RR-264870

PATIENT
  Age: 28 Year
  Sex: Female
  Weight: 58 kg

DRUGS (1)
  1. CLARITHROMYCIN. [Suspect]
     Active Substance: CLARITHROMYCIN
     Indication: ABSCESS
     Dosage: 1000 MILLIGRAM, DAILY
     Route: 048
     Dates: start: 20200920, end: 20200923

REACTIONS (10)
  - Intentional self-injury [Recovering/Resolving]
  - Bladder discomfort [Recovering/Resolving]
  - Depression [Recovering/Resolving]
  - Insomnia [Recovered/Resolved with Sequelae]
  - Pollakiuria [Recovering/Resolving]
  - Headache [Recovered/Resolved with Sequelae]
  - Abdominal pain upper [Recovering/Resolving]
  - Anger [Recovering/Resolving]
  - Dizziness [Recovered/Resolved with Sequelae]
  - Diarrhoea [Recovering/Resolving]

NARRATIVE: CASE EVENT DATE: 20200920
